FAERS Safety Report 12312733 (Version 3)
Quarter: 2016Q3

REPORT INFORMATION
  Report Type: Spontaneous
  Country: US (occurrence: US)
  Receive Date: 20160428
  Receipt Date: 20160829
  Transmission Date: 20161109
  Serious: No
  Sender: FDA-Public Use
  Company Number: US-AMGEN-USASP2016052548

PATIENT
  Age: 41 Year
  Sex: Female

DRUGS (1)
  1. ENBREL [Suspect]
     Active Substance: ETANERCEPT
     Indication: PSORIATIC ARTHROPATHY
     Dosage: 50 MG, QWK
     Route: 065
     Dates: start: 20160408

REACTIONS (5)
  - Weight increased [Unknown]
  - Peripheral swelling [Unknown]
  - Vasodilatation [Unknown]
  - Fluid retention [Unknown]
  - Injection site pain [Unknown]

NARRATIVE: CASE EVENT DATE: 201604
